FAERS Safety Report 8339718-7 (Version None)
Quarter: 2012Q2

REPORT INFORMATION
  Report Type: 
  Country: None (occurrence: None)
  Receive Date: 20120507
  Receipt Date: 20120426
  Transmission Date: 20120825
  Serious: Yes (Other)
  Sender: FDA-Public Use
  Company Number: JP-SANOFI-AVENTIS-2012SA031469

PATIENT
  Age: 20 Year
  Sex: Female

DRUGS (2)
  1. MESTINON [Concomitant]
     Indication: MYASTHENIA GRAVIS
  2. MYTELASE [Suspect]
     Indication: MYASTHENIA GRAVIS
     Route: 048
     Dates: start: 19700101

REACTIONS (1)
  - DYSPNOEA [None]
